FAERS Safety Report 21940053 (Version 1)
Quarter: 2023Q1

REPORT INFORMATION
  Report Type: Spontaneous
  Country: IL (occurrence: IL)
  Receive Date: 20230201
  Receipt Date: 20230201
  Transmission Date: 20230417
  Serious: Yes (Hospitalization)
  Sender: FDA-Public Use
  Company Number: IL-Eisai Medical Research-EC-2023-132742

PATIENT
  Age: 19 Year
  Sex: Female
  Weight: 50 kg

DRUGS (9)
  1. FYCOMPA [Suspect]
     Active Substance: PERAMPANEL
     Indication: Epilepsy
     Route: 048
     Dates: end: 20230122
  2. FYCOMPA [Suspect]
     Active Substance: PERAMPANEL
     Dosage: OVERDOSE
     Route: 048
     Dates: start: 20230123, end: 20230123
  3. CLONAZEPAM [Suspect]
     Active Substance: CLONAZEPAM
     Indication: Product used for unknown indication
     Dosage: FREQUENCY UNKNOWN
     Route: 065
     Dates: end: 20230122
  4. CLONAZEPAM [Suspect]
     Active Substance: CLONAZEPAM
     Dosage: OVERDOSE
     Route: 065
     Dates: start: 20230123, end: 20230123
  5. PHENOBARBITAL [Concomitant]
     Active Substance: PHENOBARBITAL
     Indication: Product used for unknown indication
     Dosage: FREQUENCY UNKNOWN
     Route: 065
  6. TEGRETOL XR [Concomitant]
     Active Substance: CARBAMAZEPINE
     Indication: Product used for unknown indication
     Route: 065
  7. CLOBAZAM [Concomitant]
     Active Substance: CLOBAZAM
     Indication: Product used for unknown indication
     Route: 065
  8. BRIVIACT [Concomitant]
     Active Substance: BRIVARACETAM
     Indication: Product used for unknown indication
     Route: 065
  9. VIMPAT [Concomitant]
     Active Substance: LACOSAMIDE
     Indication: Product used for unknown indication
     Route: 065

REACTIONS (5)
  - Suicide attempt [Recovering/Resolving]
  - Confusional state [Recovering/Resolving]
  - Restlessness [Recovering/Resolving]
  - Bradycardia [Recovering/Resolving]
  - Overdose [Recovering/Resolving]

NARRATIVE: CASE EVENT DATE: 20230123
